FAERS Safety Report 17062303 (Version 2)
Quarter: 2020Q2

REPORT INFORMATION
  Report Type: Spontaneous
  Country: JP (occurrence: JP)
  Receive Date: 20191122
  Receipt Date: 20200625
  Transmission Date: 20200713
  Serious: Yes (Life-Threatening, Hospitalization, Other)
  Sender: FDA-Public Use
  Company Number: JP-ASTELLAS-2019JP026377

PATIENT
  Age: 4 Year
  Sex: Male

DRUGS (18)
  1. BAKTAR [Suspect]
     Active Substance: SULFAMETHOXAZOLE\TRIMETHOPRIM
     Indication: ACUTE LYMPHOCYTIC LEUKAEMIA
     Dosage: 0.8 G/2 DOSES/DAY, 3 TIMES A WEEK
     Route: 048
     Dates: start: 20110521, end: 20140916
  2. NEUTROGIN [Concomitant]
     Active Substance: LENOGRASTIM
     Indication: PNEUMONIA
  3. PERIACTIN [Concomitant]
     Active Substance: CYPROHEPTADINE HYDROCHLORIDE
     Indication: PNEUMONIA
     Dosage: 0.1 G, TWICE DAILY
     Route: 048
     Dates: start: 20140605, end: 20140721
  4. VENILON [Concomitant]
     Active Substance: HUMAN IMMUNOGLOBULIN G
     Route: 041
     Dates: start: 20140704, end: 20140704
  5. CARBOCISTEINE [Concomitant]
     Active Substance: CARBOCYSTEINE
     Indication: PNEUMONIA
     Dosage: 0.3 G, TWICE DAILY
     Route: 048
     Dates: start: 20140605, end: 20140721
  6. VENILON [Concomitant]
     Active Substance: HUMAN IMMUNOGLOBULIN G
     Indication: HYPOGAMMAGLOBULINAEMIA
     Route: 041
     Dates: start: 20140702, end: 20140702
  7. VENILON [Concomitant]
     Active Substance: HUMAN IMMUNOGLOBULIN G
     Route: 041
     Dates: start: 20140718, end: 20140720
  8. FLUMARIN [FLOMOXEF SODIUM] [Suspect]
     Active Substance: FLOMOXEF SODIUM
     Indication: PNEUMONIA
     Dosage: 0.25 G, TWICE DAILY
     Route: 041
     Dates: start: 20140702, end: 20140714
  9. ASVERIN [RIBAVIRIN] [Concomitant]
     Indication: PNEUMONIA
     Dosage: 0.1 G, TWICE DAILY
     Route: 048
     Dates: start: 20140605, end: 20140721
  10. RACOL NF [Concomitant]
     Active Substance: AMINO ACIDS\DEXTROSE\ELECTROLYTES NOS\SOYBEAN OIL\VITAMINS
     Indication: HYPOALBUMINAEMIA
  11. ALBUMIN [Concomitant]
     Active Substance: ALBUMIN HUMAN
     Indication: HYPOALBUMINAEMIA
     Route: 041
     Dates: start: 20140707, end: 20140707
  12. METHOTREXATE. [Suspect]
     Active Substance: METHOTREXATE
     Indication: ACUTE LYMPHOCYTIC LEUKAEMIA
     Dosage: 20 MG/M2, EVERY WEEK
     Route: 065
  13. MERCAPTOPURINE. [Suspect]
     Active Substance: MERCAPTOPURINE
     Indication: ACUTE LYMPHOCYTIC LEUKAEMIA
     Dosage: 75 MG/M2/DAY, UNKNOWN FREQ.
     Route: 048
  14. HOKUNALIN [TULOBUTEROL HYDROCHLORIDE] [Concomitant]
     Indication: PNEUMONIA
     Dosage: 0.2 G, TWICE DAILY
     Route: 048
     Dates: start: 20140605, end: 20140721
  15. NEUTROGIN [Concomitant]
     Active Substance: LENOGRASTIM
     Indication: ACUTE LYMPHOCYTIC LEUKAEMIA
     Route: 041
     Dates: start: 20140702, end: 20140721
  16. RACOL NF [Concomitant]
     Active Substance: AMINO ACIDS\DEXTROSE\ELECTROLYTES NOS\SOYBEAN OIL\VITAMINS
     Indication: GASTROENTERITIS NOROVIRUS
     Route: 045
     Dates: start: 20140702, end: 20140721
  17. FOLIAMIN [Concomitant]
     Active Substance: FOLIC ACID
     Indication: ANAEMIA FOLATE DEFICIENCY
     Route: 048
     Dates: start: 20140715, end: 20150323
  18. FUNGUARD [Suspect]
     Active Substance: MICAFUNGIN SODIUM
     Indication: PNEUMONIA
     Route: 041
     Dates: start: 20140703, end: 20140812

REACTIONS (8)
  - Off label use [Unknown]
  - Product use in unapproved indication [Unknown]
  - Blood lactate dehydrogenase increased [Unknown]
  - Seizure [Unknown]
  - Coagulopathy [Recovered/Resolved]
  - Vitamin K deficiency [Recovered/Resolved]
  - Subdural haematoma [Recovered/Resolved]
  - Anaemia folate deficiency [Recovered/Resolved]

NARRATIVE: CASE EVENT DATE: 20140703
